FAERS Safety Report 4463085-2 (Version None)
Quarter: 2004Q3

REPORT INFORMATION
  Report Type: 
  Country: None (occurrence: None)
  Receive Date: 20040928
  Receipt Date: 20040914
  Transmission Date: 20050211
  Serious: Yes (Hospitalization)
  Sender: FDA-Public Use
  Company Number: 208167

PATIENT
  Age: 12 Year
  Sex: Female
  Weight: 30.9 kg

DRUGS (20)
  1. NUTROPIN AQ [Suspect]
     Indication: LUNG DISORDER
     Dosage: 1.545 MG, 6/WEEK, SUBCUTANEOUS
     Route: 058
     Dates: start: 20030702, end: 20040513
  2. HUMALOG [Suspect]
  3. ZITHROMAX [Concomitant]
  4. PREVACID [Concomitant]
  5. ZOLOFT [Concomitant]
  6. VITAMAX (MULTIVITAMIN NOS) [Concomitant]
  7. CLARITIN [Concomitant]
  8. MIRALAX [Concomitant]
  9. FLONASE [Concomitant]
  10. ALBUTEROL (ALBUTEROL SULFAGE, ALBUTEROL) [Concomitant]
  11. PULMOZYME INHALATION VAPOUR, SOLUTION [Concomitant]
  12. TOBI NEBULIZER (TOBRAMYCIN) [Concomitant]
  13. TEQUIN [Concomitant]
  14. LINEZOLID (LINEZOLID) [Concomitant]
  15. ULTRASE (PANCRELIPASE) [Concomitant]
  16. ALLEGRA [Concomitant]
  17. MEGACE [Concomitant]
  18. ACIPHEX [Concomitant]
  19. DEPAKOTE [Concomitant]
  20. FLOVENT [Concomitant]

REACTIONS (8)
  - BLOOD GLUCOSE FLUCTUATION [None]
  - CYSTIC FIBROSIS [None]
  - DEHYDRATION [None]
  - DIABETES MELLITUS [None]
  - DISEASE PROGRESSION [None]
  - HYPOCALCAEMIA [None]
  - HYPONATRAEMIA [None]
  - LETHARGY [None]
